FAERS Safety Report 4650355-8 (Version None)
Quarter: 2005Q2

REPORT INFORMATION
  Report Type: 
  Country: None (occurrence: None)
  Receive Date: 20050428
  Receipt Date: 20050415
  Transmission Date: 20051028
  Serious: Yes (Death)
  Sender: FDA-Public Use
  Company Number: 2005060637

PATIENT
  Age: 55 Year
  Sex: Male

DRUGS (3)
  1. BEXTRA [Suspect]
     Indication: ILL-DEFINED DISORDER
     Dates: end: 20040101
  2. ROSIGLITAZONE MALEATE [Suspect]
     Indication: DIABETES MELLITUS
     Dates: end: 20040101
  3. INFLUENZA VACCINE (INFLUENZA VACCINE) [Suspect]
     Indication: ILL-DEFINED DISORDER
     Dates: start: 20041101, end: 20041101

REACTIONS (1)
  - DEATH [None]
